FAERS Safety Report 10471097 (Version 4)
Quarter: 2015Q3

REPORT INFORMATION
  Report Type: Spontaneous
  Country: US (occurrence: US)
  Receive Date: 20140923
  Receipt Date: 20150728
  Transmission Date: 20151125
  Serious: Yes (Death, Hospitalization, Other)
  Sender: FDA-Public Use
  Company Number: US-009507513-1409USA010742

PATIENT
  Sex: Female
  Weight: 83.9 kg

DRUGS (1)
  1. JANUVIA [Suspect]
     Active Substance: SITAGLIPTIN PHOSPHATE
     Indication: TYPE 2 DIABETES MELLITUS
     Dosage: 100 MG, QD
     Route: 048
     Dates: start: 20071030, end: 20080821

REACTIONS (28)
  - Depression [Unknown]
  - Tinnitus [Unknown]
  - Pain in extremity [Unknown]
  - Blood glucose decreased [Unknown]
  - Deep vein thrombosis [Unknown]
  - Anxiety [Unknown]
  - Neuropathy peripheral [Unknown]
  - Hypokalaemia [Unknown]
  - Central nervous system lesion [Unknown]
  - Malignant neoplasm of unknown primary site [Fatal]
  - Fall [Unknown]
  - Urinary tract infection [Unknown]
  - Metastases to liver [Unknown]
  - Cholecystectomy [Unknown]
  - Epistaxis [Recovered/Resolved]
  - Failure to thrive [Unknown]
  - Drug ineffective [Unknown]
  - Cardiac murmur [Unknown]
  - Pancreatic carcinoma [Unknown]
  - Hyponatraemia [Unknown]
  - Thyroid cancer [Unknown]
  - Thrombocytopenia [Unknown]
  - Asthenia [Unknown]
  - Rales [Unknown]
  - Blood potassium decreased [Unknown]
  - Drug ineffective [Unknown]
  - Anaemia of chronic disease [Not Recovered/Not Resolved]
  - Drug ineffective [Unknown]

NARRATIVE: CASE EVENT DATE: 20080303
